FAERS Safety Report 8788918 (Version 3)
Quarter: 2012Q4

REPORT INFORMATION
  Report Type: 
  Country: US (occurrence: US)
  Receive Date: 20120915
  Receipt Date: 20121015
  Transmission Date: 20130627
  Serious: Yes (Other)
  Sender: FDA-Public Use
  Company Number: US-009507513-1209USA004400

PATIENT
  Age: 55 None
  Sex: Female
  Weight: 64.4 kg

DRUGS (6)
  1. DULERA [Suspect]
     Indication: ASTHMA
     Dosage: 2 DF, bid
     Route: 055
     Dates: start: 20120815
  2. DULERA [Suspect]
     Dosage: 2 DF, bid
     Route: 045
     Dates: start: 20120910, end: 20120910
  3. LORATADINE [Concomitant]
     Indication: HYPERSENSITIVITY
     Dosage: 10 mg, UNK
     Route: 048
  4. PRILOSEC [Concomitant]
     Indication: GASTROOESOPHAGEAL REFLUX DISEASE
     Dosage: 40 mg, UNK
     Route: 048
  5. PROVENTIL [Concomitant]
     Indication: ASTHMA
     Dosage: UNK, bid
     Route: 048
  6. MULTIVIT [Concomitant]
     Indication: VITAMIN SUPPLEMENTATION
     Dosage: 1 DF, qd
     Route: 048

REACTIONS (3)
  - Syncope [Recovered/Resolved]
  - Syncope [Recovered/Resolved]
  - Feeling abnormal [Unknown]
